FAERS Safety Report 6252539-4 (Version None)
Quarter: 2009Q2

REPORT INFORMATION
  Report Type: 
  Country: None (occurrence: None)
  Receive Date: 20090629
  Receipt Date: 20090629
  Transmission Date: 20091009
  Serious: No
  Sender: FDA-Public Use
  Company Number: None

PATIENT
  Age: 64 Year
  Sex: Male
  Weight: 77.1115 kg

DRUGS (1)
  1. SIMVASTATIN [Suspect]
     Indication: BLOOD CHOLESTEROL INCREASED
     Dosage: ONE PILL BY MOUTH AT NIGHT MFR: TEVA, USA RECENTLY

REACTIONS (2)
  - OESOPHAGEAL PAIN [None]
  - OROPHARYNGEAL PAIN [None]
